FAERS Safety Report 19904459 (Version 2)
Quarter: 2021Q4

REPORT INFORMATION
  Report Type: Spontaneous
  Country: NZ (occurrence: NZ)
  Receive Date: 20211001
  Receipt Date: 20211108
  Transmission Date: 20220303
  Serious: Yes (Death, Other)
  Sender: FDA-Public Use
  Company Number: NZ-MYLANLABS-2021M1068147

PATIENT
  Age: 50 Year
  Sex: Male

DRUGS (5)
  1. CLOZARIL [Suspect]
     Active Substance: CLOZAPINE
     Indication: Schizophrenia
     Dosage: UNK
     Route: 048
     Dates: start: 20030227
  2. CLOZARIL [Suspect]
     Active Substance: CLOZAPINE
     Dosage: 400 MILLIGRAM (NOCTE)
     Route: 048
  3. CLONAZEPAM [Concomitant]
     Active Substance: CLONAZEPAM
     Dosage: 2 MILLIGRAM, BID (PO, 2 MG BD,)
     Route: 048
  4. SIMVASTATIN [Concomitant]
     Active Substance: SIMVASTATIN
     Dosage: 20 MILLIGRAM (PO, 20 MG NOCTE)
     Route: 048
  5. LAXAL                              /00163401/ [Concomitant]
     Dosage: UNK (PO, II MANE)
     Route: 048

REACTIONS (3)
  - Pancreatic carcinoma [Fatal]
  - Cachexia [Unknown]
  - Anaemia [Unknown]

NARRATIVE: CASE EVENT DATE: 20210729
